FAERS Safety Report 6663595-3 (Version None)
Quarter: 2010Q2

REPORT INFORMATION
  Report Type: 
  Country: None (occurrence: None)
  Receive Date: 20100401
  Receipt Date: 20100324
  Transmission Date: 20101027
  Serious: Yes (Hospitalization)
  Sender: FDA-Public Use
  Company Number: IT-ROCHE-683840

PATIENT
  Sex: Female

DRUGS (8)
  1. AVASTIN [Suspect]
     Indication: COLON CANCER
     Dosage: FREQUENCY: CYCLE.
     Route: 042
     Dates: start: 20091126
  2. AVASTIN [Suspect]
     Dosage: DOSE: 309, FREQUENCY: CYCLE.
     Route: 042
  3. ENOXAPARIN SODIUM [Concomitant]
     Dates: start: 20091126
  4. SOLDESAM [Concomitant]
  5. ZOFRAN [Concomitant]
  6. LEVOFOLENE [Concomitant]
  7. IRINOTECAN HCL [Concomitant]
     Dosage: REPORTED AS IRINOTECAN MYLAN
  8. FLUOROURACIL [Concomitant]
     Dosage: REPORTED AS FLUOROURACIL HOSPIRA

REACTIONS (4)
  - HEADACHE [None]
  - HYPERTENSIVE CRISIS [None]
  - TACHYCARDIA [None]
  - VERTIGO [None]
